FAERS Safety Report 9669475 (Version 3)
Quarter: 2014Q1

REPORT INFORMATION
  Report Type: Report from Study
  Country: FR (occurrence: FR)
  Receive Date: 20131105
  Receipt Date: 20140122
  Transmission Date: 20141002
  Serious: Yes (Hospitalization, Other)
  Sender: FDA-Public Use
  Company Number: FR-PFIZER INC-2013309810

PATIENT
  Age: 40 Year
  Sex: Male
  Weight: 110 kg

DRUGS (17)
  1. ATGAM [Suspect]
     Indication: BONE MARROW FAILURE
     Dosage: 40 MG/KG, DAILY
     Route: 042
     Dates: start: 20130208, end: 20130211
  2. NEORAL [Concomitant]
     Indication: BONE MARROW FAILURE
     Dosage: 125 MG IN THE MORNING AND 100 MG IN THE EVENING
     Dates: end: 20130211
  3. NEORAL [Concomitant]
     Dosage: 160 MG, 2X/DAY
     Dates: start: 20130212, end: 201307
  4. NEORAL [Concomitant]
     Dosage: 100 MG, 2X/DAY
     Dates: start: 201307
  5. SOLU-MEDROL [Concomitant]
     Indication: PREMEDICATION
     Dosage: 1 MG/KG, DAILY
  6. SOLU-MEDROL [Concomitant]
     Dosage: UNK
     Dates: end: 201304
  7. BACTRIM [Concomitant]
     Dosage: 800 MG, 3 TIMES PER WEEK
  8. CLAMOXYL [Concomitant]
     Indication: PREMEDICATION
     Dosage: 500 MG, DAILY
  9. ZELITREX [Concomitant]
     Indication: PREMEDICATION
     Dosage: 500 MG, DAILY
  10. LEDERFOLINE [Concomitant]
     Dosage: 25 MG, 2X/WEEK
  11. LOXEN [Concomitant]
     Dosage: 50 MG, 1X/DAY
  12. PARIET [Concomitant]
     Dosage: 10 MG, DAILY
  13. NEURONTIN [Concomitant]
     Indication: MUSCULOSKELETAL PAIN
     Dosage: 1200 MG, 3X/DAY
  14. OXYCONTIN [Concomitant]
     Dosage: 20 MG, 2X/DAY
  15. LAROXYL [Concomitant]
     Dosage: 10 GTT, DAILY
  16. NOXAFIL [Concomitant]
     Indication: PREMEDICATION
  17. WELLVONE [Concomitant]
     Indication: PREMEDICATION
     Dosage: 750 MG, 2X/DAY

REACTIONS (4)
  - Fasciitis [Recovered/Resolved]
  - Bronchiolitis [Recovered/Resolved]
  - Oedema peripheral [Not Recovered/Not Resolved]
  - Pyrexia [Recovered/Resolved]
